FAERS Safety Report 20759596 (Version 1)
Quarter: 2022Q2

REPORT INFORMATION
  Report Type: Spontaneous
  Country: US (occurrence: US)
  Receive Date: 20220427
  Receipt Date: 20220427
  Transmission Date: 20220721
  Serious: No
  Sender: FDA-Public Use
  Company Number: US-BioHaven Pharmaceuticals-2022BHV000590

PATIENT
  Age: 60 Year
  Sex: Female
  Weight: 47.670 kg

DRUGS (2)
  1. NURTEC ODT [Suspect]
     Active Substance: RIMEGEPANT SULFATE
     Indication: Migraine
     Route: 048
  2. NURTEC ODT [Suspect]
     Active Substance: RIMEGEPANT SULFATE
     Dosage: GOING TO SWITCH TO THE PREVENTATIVE EVERY OTHER DAY DOSING TO SEE IF THAT HELPS THIS ISSUE.
     Route: 048

REACTIONS (1)
  - Headache [Not Recovered/Not Resolved]
